FAERS Safety Report 4334318-8 (Version None)
Quarter: 2004Q2

REPORT INFORMATION
  Report Type: 
  Country: None (occurrence: None)
  Receive Date: 20040405
  Receipt Date: 20040323
  Transmission Date: 20050107
  Serious: Yes (Life-Threatening)
  Sender: FDA-Public Use
  Company Number: HQWYE042023MAR04

PATIENT
  Age: 54 Year
  Sex: Male

DRUGS (5)
  1. TRANGOREX (AMIODARONE TABLET) [Suspect]
     Indication: ATRIAL FIBRILLATION
     Dosage: 200 MG (UNSPECIFIED); ORAL
     Route: 048
     Dates: start: 20040116, end: 20040203
  2. TRANGOREX (AMIODARONE TABLET) [Suspect]
     Indication: ATRIAL FLUTTER
     Dosage: 200 MG (UNSPECIFIED); ORAL
     Route: 048
     Dates: start: 20040116, end: 20040203
  3. VANCOMYCIN [Concomitant]
  4. GENTAMICIN [Concomitant]
  5. SINTROM [Concomitant]

REACTIONS (2)
  - LUNG INFILTRATION [None]
  - RENAL FAILURE ACUTE [None]
